FAERS Safety Report 8244133-0 (Version None)
Quarter: 2012Q1

REPORT INFORMATION
  Report Type: 
  Country: None (occurrence: None)
  Receive Date: 20120329
  Receipt Date: 20120315
  Transmission Date: 20120608
  Serious: Yes (Hospitalization, Disabling)
  Sender: FDA-Public Use
  Company Number: IT-CELGENEUS-083-21880-12011117

PATIENT
  Sex: Male

DRUGS (5)
  1. ENOXAPARIN SODIUM [Concomitant]
     Route: 023
     Dates: start: 20090803, end: 20110127
  2. REVLIMID [Suspect]
     Indication: MULTIPLE MYELOMA
     Dosage: 5 MILLIGRAM
     Route: 048
     Dates: start: 20090803, end: 20110127
  3. DEXAMETHASONE [Concomitant]
     Route: 048
     Dates: start: 20090803, end: 20110127
  4. FUROSEMIDE [Concomitant]
     Route: 048
  5. HEPARIN [Concomitant]
     Route: 065

REACTIONS (1)
  - PERIPHERAL EMBOLISM [None]
